FAERS Safety Report 4507700-3 (Version None)
Quarter: 2004Q4

REPORT INFORMATION
  Report Type: 
  Country: None (occurrence: None)
  Receive Date: 20041122
  Receipt Date: 20041108
  Transmission Date: 20050328
  Serious: Yes (Death)
  Sender: FDA-Public Use
  Company Number: 2004089206

PATIENT
  Age: 35 Year
  Sex: Male
  Weight: 68.0396 kg

DRUGS (2)
  1. UNISOM [Suspect]
     Indication: SUICIDE ATTEMPT
     Dosage: 64, SLEEPGELS ONCE, ORAL
     Route: 048
     Dates: start: 20040416, end: 20040416
  2. METAXALONE [Concomitant]

REACTIONS (5)
  - BRAIN DEATH [None]
  - COMPLETED SUICIDE [None]
  - INTENTIONAL OVERDOSE [None]
  - INTENTIONAL SELF-INJURY [None]
  - SUICIDE ATTEMPT [None]
